FAERS Safety Report 8313842-7 (Version None)
Quarter: 2012Q2

REPORT INFORMATION
  Report Type: 
  Country: None (occurrence: None)
  Receive Date: 20120426
  Receipt Date: 20120419
  Transmission Date: 20120825
  Serious: Yes (Hospitalization)
  Sender: FDA-Public Use
  Company Number: US-BAYER-2011-123431

PATIENT
  Age: 31 Year
  Sex: Female
  Weight: 84.807 kg

DRUGS (2)
  1. YAZ [Suspect]
     Indication: CONTRACEPTION
     Dosage: UNK
     Dates: start: 20081110, end: 20090310
  2. YAZ [Suspect]
     Indication: HYPERTRICHOSIS

REACTIONS (6)
  - CHOLELITHIASIS [None]
  - PANCREATITIS [None]
  - NAUSEA [None]
  - VOMITING [None]
  - ABDOMINAL PAIN [None]
  - CHOLECYSTITIS CHRONIC [None]
